FAERS Safety Report 7230210-X (Version None)
Quarter: 2011Q1

REPORT INFORMATION
  Report Type: 
  Country: None (occurrence: None)
  Receive Date: 20110118
  Receipt Date: 20110105
  Transmission Date: 20110831
  Serious: Yes (Other)
  Sender: FDA-Public Use
  Company Number: GB-US-EMD SERONO, INC.-7007891

PATIENT
  Sex: Female

DRUGS (2)
  1. SAIZEN [Suspect]
     Indication: GROWTH HORMONE DEFICIENCY
     Dates: end: 20100401
  2. SAIZEN [Suspect]

REACTIONS (1)
  - SLEEP APNOEA SYNDROME [None]
